FAERS Safety Report 4433291-1 (Version None)
Quarter: 2004Q3

REPORT INFORMATION
  Report Type: 
  Country: None (occurrence: None)
  Receive Date: 20040826
  Receipt Date: 20040621
  Transmission Date: 20050211
  Serious: Yes (Other)
  Sender: FDA-Public Use
  Company Number: BR-BRISTOL-MYERS SQUIBB COMPANY-12622171

PATIENT
  Age: 59 Year
  Sex: Female
  Weight: 73 kg

DRUGS (2)
  1. TAXOL [Suspect]
     Indication: OVARIAN CANCER
     Dosage: 230 MG AT C1 + 2 (03-APR + 30-MAY), 300 MG AT C3-5 (23-JUN TO 03-SEP)
     Route: 042
     Dates: start: 20030403, end: 20030403
  2. PARAPLATIN [Concomitant]
     Indication: OVARIAN CANCER

REACTIONS (1)
  - ANOREXIA [None]
